FAERS Safety Report 8346027-9 (Version None)
Quarter: 2012Q2

REPORT INFORMATION
  Report Type: 
  Country: None (occurrence: None)
  Receive Date: 20120509
  Receipt Date: 20120504
  Transmission Date: 20120825
  Serious: No
  Sender: FDA-Public Use
  Company Number: US-PFIZER INC-2012110275

PATIENT
  Sex: Male
  Weight: 113.38 kg

DRUGS (3)
  1. ADVIL CONGESTION RELIEF [Suspect]
     Indication: NASAL CONGESTION
     Dosage: 200 MG, DAILY
     Dates: start: 20120401, end: 20120502
  2. COPAXONE [Concomitant]
     Indication: MULTIPLE SCLEROSIS
     Dosage: UNK, DAILY
  3. ADVIL CONGESTION RELIEF [Suspect]
     Indication: PYREXIA

REACTIONS (1)
  - DRUG INEFFECTIVE [None]
